FAERS Safety Report 12460421 (Version 3)
Quarter: 2020Q1

REPORT INFORMATION
  Report Type: Spontaneous
  Country: NL (occurrence: NL)
  Receive Date: 20160613
  Receipt Date: 20200115
  Transmission Date: 20200409
  Serious: Yes (Hospitalization)
  Sender: FDA-Public Use
  Company Number: NL-JNJFOC-20160603322

PATIENT
  Age: 55 Year
  Sex: Female

DRUGS (14)
  1. METHYLPREDNISOLONE. [Concomitant]
     Active Substance: METHYLPREDNISOLONE
     Dates: start: 20060123, end: 20060123
  2. ETANERCEPT [Concomitant]
     Active Substance: ETANERCEPT
     Dates: start: 20030326, end: 20030724
  3. REMICADE [Suspect]
     Active Substance: INFLIXIMAB
     Route: 042
     Dates: start: 20030724, end: 20060612
  4. REMICADE [Suspect]
     Active Substance: INFLIXIMAB
     Route: 042
     Dates: start: 20060612, end: 20080303
  5. REMICADE [Suspect]
     Active Substance: INFLIXIMAB
     Indication: RHEUMATOID ARTHRITIS
     Route: 042
     Dates: start: 20001001, end: 20030326
  6. REMICADE [Suspect]
     Active Substance: INFLIXIMAB
     Route: 042
     Dates: start: 20081021, end: 20081105
  7. CELECOXIB. [Concomitant]
     Active Substance: CELECOXIB
     Dates: start: 20040218, end: 20061101
  8. METHYLPREDNISOLONE. [Concomitant]
     Active Substance: METHYLPREDNISOLONE
     Dates: start: 20010704, end: 20010704
  9. FOLIUMZUUR [Concomitant]
     Active Substance: FOLIC ACID
     Dates: start: 20061218, end: 20070228
  10. ADALIMUMAB [Concomitant]
     Active Substance: ADALIMUMAB
     Dates: start: 20080303, end: 20081001
  11. DICLOFENAC [Concomitant]
     Active Substance: DICLOFENAC
     Dates: start: 20000518, end: 20010101
  12. METHOTREXATE. [Concomitant]
     Active Substance: METHOTREXATE
     Dates: start: 20061218, end: 20070228
  13. METHYLPREDNISOLONE. [Concomitant]
     Active Substance: METHYLPREDNISOLONE
     Dates: start: 20040527, end: 20040527
  14. PARACETAMOL [Concomitant]
     Active Substance: ACETAMINOPHEN
     Dates: start: 20000518, end: 20150101

REACTIONS (3)
  - Malaise [Recovered/Resolved]
  - Photosensitivity reaction [Unknown]
  - Drug ineffective [Unknown]

NARRATIVE: CASE EVENT DATE: 20081105
